FAERS Safety Report 23932323 (Version 1)
Quarter: 2024Q2

REPORT INFORMATION
  Report Type: Spontaneous
  Country: CA (occurrence: None)
  Receive Date: 20240603
  Receipt Date: 20240603
  Transmission Date: 20240716
  Serious: Yes (Other)
  Sender: FDA-Public Use
  Company Number: CA-ROCHE-3573797

PATIENT

DRUGS (2)
  1. RITUXIMAB [Suspect]
     Active Substance: RITUXIMAB
     Indication: Rheumatoid arthritis
     Route: 065
  2. SPIKEVAX [Concomitant]

REACTIONS (9)
  - Antibody test abnormal [Unknown]
  - Arthralgia [Unknown]
  - COVID-19 [Unknown]
  - Fatigue [Unknown]
  - Injection site pain [Unknown]
  - Joint swelling [Unknown]
  - Musculoskeletal disorder [Unknown]
  - Neutralising antibodies [Unknown]
  - Ophthalmic herpes zoster [Unknown]
